FAERS Safety Report 8456359-1 (Version None)
Quarter: 2012Q2

REPORT INFORMATION
  Report Type: 
  Country: None (occurrence: None)
  Receive Date: 20120621
  Receipt Date: 20120615
  Transmission Date: 20120825
  Serious: Yes (Hospitalization)
  Sender: FDA-Public Use
  Company Number: JP-GLAXOSMITHKLINE-B0805345A

PATIENT
  Sex: Female

DRUGS (6)
  1. ZETIA [Concomitant]
     Indication: HYPERLIPIDAEMIA
     Dosage: 10MG PER DAY
     Route: 048
     Dates: end: 20120525
  2. ARASENA-A [Concomitant]
  3. GASCON [Concomitant]
     Indication: CONSTIPATION
     Dosage: 80MG PER DAY
     Route: 048
     Dates: end: 20120525
  4. VALTREX [Suspect]
     Indication: HERPES ZOSTER
     Dosage: 3000MG PER DAY
     Route: 048
     Dates: start: 20120522, end: 20120525
  5. CANDESARTAN CILEXETIL [Concomitant]
     Indication: HYPERTENSION
     Dosage: 4MG PER DAY
     Route: 048
     Dates: end: 20120525
  6. MAGNESIUM OXIDE [Concomitant]
     Indication: CONSTIPATION
     Dosage: 4G PER DAY
     Route: 048
     Dates: end: 20120525

REACTIONS (10)
  - SPEECH DISORDER [None]
  - ATAXIA [None]
  - BLOOD UREA INCREASED [None]
  - ENCEPHALOPATHY [None]
  - LOSS OF CONSCIOUSNESS [None]
  - BLOOD CREATININE INCREASED [None]
  - BLOOD SODIUM DECREASED [None]
  - RENAL FAILURE ACUTE [None]
  - THIRST [None]
  - CHOLELITHIASIS [None]
